FAERS Safety Report 8251979-1 (Version None)
Quarter: 2012Q2

REPORT INFORMATION
  Report Type: 
  Country: None (occurrence: None)
  Receive Date: 20120402
  Receipt Date: 20120327
  Transmission Date: 20120825
  Serious: Yes (Life-Threatening, Hospitalization, Other)
  Sender: FDA-Public Use
  Company Number: PHHY2012DE026693

PATIENT
  Sex: Female
  Weight: 61 kg

DRUGS (11)
  1. OMEPRAZOLE [Concomitant]
     Indication: GASTROOESOPHAGEAL REFLUX DISEASE
     Dosage: 20 MG/DAY
     Route: 048
     Dates: start: 20070706
  2. AMLODIPINE [Suspect]
     Indication: HYPERTENSION
     Dosage: 5 MG/DAY
     Route: 048
     Dates: start: 20040101, end: 20111227
  3. DIGITOXIN TAB [Suspect]
     Indication: CARDIAC FAILURE
     Dosage: 0.07 MG/DAY
     Route: 048
     Dates: start: 20010101, end: 20111227
  4. IRBESARTAN + HYDROCHLOROTHIAZIDE [Suspect]
     Indication: HYPERTENSION
     Route: 048
     Dates: start: 20060101, end: 20111227
  5. FUROSEMIDE [Concomitant]
     Indication: OEDEMA
     Dosage: 40 MG
     Route: 048
     Dates: start: 20000101, end: 20111227
  6. ASPIRIN [Concomitant]
     Indication: CORONARY ARTERY DISEASE
     Dosage: 100 MG/DAY
     Route: 048
     Dates: start: 19980601
  7. ASPIRIN [Concomitant]
     Indication: PERIPHERAL ARTERIAL OCCLUSIVE DISEASE
  8. SIMVASTATIN [Concomitant]
     Indication: HYPERLIPIDAEMIA
     Dosage: 20 MG/DAY
     Route: 048
     Dates: start: 20000101, end: 20111227
  9. RASILEZ [Suspect]
     Indication: HYPERTENSION
     Dosage: 150 MG/DAY
     Route: 048
     Dates: start: 20090320, end: 20111201
  10. ORAL ANTIDIABETICS [Concomitant]
     Indication: DIABETES MELLITUS
  11. ISMN [Concomitant]
     Indication: ANGINA PECTORIS
     Dosage: 40 MG/DAY
     Route: 048
     Dates: start: 19980601, end: 20111227

REACTIONS (6)
  - CARDIAC FAILURE [None]
  - BRADYARRHYTHMIA [None]
  - HYPERURICAEMIA [None]
  - HYPERKALAEMIA [None]
  - TOXICITY TO VARIOUS AGENTS [None]
  - CARDIOGENIC SHOCK [None]
